FAERS Safety Report 23891174 (Version 2)
Quarter: 2024Q2

REPORT INFORMATION
  Report Type: Spontaneous
  Country: CN (occurrence: CN)
  Receive Date: 20240523
  Receipt Date: 20240612
  Transmission Date: 20240715
  Serious: Yes (Hospitalization, Other)
  Sender: FDA-Public Use
  Company Number: CN-Merck Healthcare KGaA-2024026130

PATIENT
  Age: 35 Year
  Sex: Male
  Weight: 67 kg

DRUGS (1)
  1. ERBITUX [Suspect]
     Active Substance: CETUXIMAB
     Indication: Product used for unknown indication
     Dosage: 435 MG, UNKNOWN (5 MILLIGRAM/MILLILITER, SINGLE)
     Route: 041
     Dates: start: 20240422, end: 20240422

REACTIONS (6)
  - Oral disorder [Unknown]
  - Lymphocyte count decreased [Unknown]
  - Blood glucose increased [Unknown]
  - Seborrhoeic dermatitis [Recovering/Resolving]
  - Fungal skin infection [Unknown]
  - Folliculitis [Recovering/Resolving]

NARRATIVE: CASE EVENT DATE: 20240427
